FAERS Safety Report 6930653-5 (Version None)
Quarter: 2010Q3

REPORT INFORMATION
  Report Type: 
  Country: None (occurrence: None)
  Receive Date: 20100818
  Receipt Date: 20100726
  Transmission Date: 20110219
  Serious: No
  Sender: FDA-Public Use
  Company Number: A0858936A

PATIENT
  Age: 75 Year
  Sex: Male

DRUGS (4)
  1. COREG CR [Suspect]
     Indication: HYPERTENSION
     Route: 048
  2. CARVEDILOL [Suspect]
     Indication: HYPERTENSION
     Dosage: 25MG TWICE PER DAY
     Route: 048
     Dates: start: 20100701, end: 20100701
  3. NO CONCURRENT MEDICATION [Concomitant]
  4. FUROSEMIDE [Concomitant]

REACTIONS (1)
  - VERTIGO [None]
